FAERS Safety Report 18470645 (Version 3)
Quarter: 2021Q1

REPORT INFORMATION
  Report Type: Spontaneous
  Country: US (occurrence: US)
  Receive Date: 20201106
  Receipt Date: 20210211
  Transmission Date: 20210419
  Serious: Yes (Life-Threatening, Hospitalization, Other)
  Sender: FDA-Public Use
  Company Number: US-DRREDDYS-USA/USA/20/0128594

PATIENT
  Age: 71 Year
  Sex: Male

DRUGS (1)
  1. AMIODARONE HYDROCHLORIDE. [Suspect]
     Active Substance: AMIODARONE HYDROCHLORIDE
     Indication: ATRIAL FIBRILLATION

REACTIONS (7)
  - Encephalopathy [Recovering/Resolving]
  - Hyponatraemia [Unknown]
  - Cardiomegaly [Recovering/Resolving]
  - Pneumonia [Unknown]
  - Azotaemia [Unknown]
  - Acute kidney injury [Recovering/Resolving]
  - Myxoedema coma [Recovering/Resolving]
